FAERS Safety Report 23997900 (Version 1)
Quarter: 2024Q2

REPORT INFORMATION
  Report Type: Spontaneous
  Country: US (occurrence: US)
  Receive Date: 20240621
  Receipt Date: 20240621
  Transmission Date: 20240715
  Serious: Yes (Death, Life-Threatening, Hospitalization, Other)
  Sender: FDA-Public Use
  Company Number: US-BAXTER-2024BAX019921

PATIENT
  Age: 74 Year
  Sex: Female

DRUGS (2)
  1. VANCOMYCIN [Suspect]
     Active Substance: VANCOMYCIN
     Dosage: PREVIOUSLY DURING LEFT ENDOSCOPIC CARPAL TUNNEL RELEASE DURING WHICH PATIENT RECEIVED A DOSE OF VANC
     Route: 065
  2. VANCOMYCIN [Suspect]
     Active Substance: VANCOMYCIN
     Dosage: PRIOR TO THE RIGHT ENDOSCOPIC CARPAL TUNNEL RELEASE, PATIENT RECEIVED A DOSE OF VANCOMYCIN
     Route: 065

REACTIONS (6)
  - Multiple organ dysfunction syndrome [Fatal]
  - Sepsis [Fatal]
  - Disseminated intravascular coagulation [Unknown]
  - Anaphylactic reaction [Unknown]
  - Cardiac arrest [Unknown]
  - Pulseless electrical activity [Unknown]
